FAERS Safety Report 4307735-X (Version None)
Quarter: 2004Q1

REPORT INFORMATION
  Report Type: 
  Country: None (occurrence: None)
  Receive Date: 20040225
  Receipt Date: 20031017
  Transmission Date: 20041129
  Serious: Yes (Hospitalization, Other)
  Sender: FDA-Public Use
  Company Number: WAES 0310USA02146

PATIENT
  Age: 80 Year
  Sex: Male

DRUGS (8)
  1. ZOCOR [Suspect]
     Indication: HYPERLIPIDAEMIA
     Dosage: 40 - 80 MG/DAILY/PO
     Route: 048
     Dates: start: 20020101, end: 20030901
  2. ZOCOR [Suspect]
     Indication: HYPERLIPIDAEMIA
     Dosage: 40 - 80 MG/DAILY/PO
     Route: 048
     Dates: start: 20030901, end: 20031014
  3. ASACOL [Concomitant]
  4. DARVOCET-N 100 [Concomitant]
  5. DIOVAN [Concomitant]
  6. HYDRODIURIL [Concomitant]
  7. PROSCAR [Concomitant]
  8. ATENOLOL [Concomitant]

REACTIONS (1)
  - RHABDOMYOLYSIS [None]
